FAERS Safety Report 17374431 (Version 2)
Quarter: 2020Q1

REPORT INFORMATION
  Report Type: Spontaneous
  Country: US (occurrence: US)
  Receive Date: 20200205
  Receipt Date: 20200219
  Transmission Date: 20200409
  Serious: No
  Sender: FDA-Public Use
  Company Number: US-PFIZER INC-2020050859

PATIENT
  Age: 55 Year
  Sex: Female
  Weight: 95.69 kg

DRUGS (1)
  1. GABAPENTIN. [Suspect]
     Active Substance: GABAPENTIN
     Dosage: 400 MG, 3X/DAY
     Route: 048
     Dates: start: 20200131

REACTIONS (2)
  - Depressed mood [Unknown]
  - Drug hypersensitivity [Unknown]
